FAERS Safety Report 24027945 (Version 1)
Quarter: 2024Q2

REPORT INFORMATION
  Report Type: Spontaneous
  Country: JP (occurrence: JP)
  Receive Date: 20240628
  Receipt Date: 20240628
  Transmission Date: 20240716
  Serious: Yes (Other)
  Sender: FDA-Public Use
  Company Number: JP-UCBJ-CD202405786UCBPHAPROD

PATIENT
  Sex: Male
  Weight: 0.966 kg

DRUGS (2)
  1. VIMPAT [Suspect]
     Active Substance: LACOSAMIDE
     Indication: Epilepsy
     Dosage: UNK
     Route: 064
  2. LEVETIRACETAM [Suspect]
     Active Substance: LEVETIRACETAM
     Indication: Epilepsy
     Dosage: UNK
     Route: 064

REACTIONS (8)
  - Uterine hypoplasia [Unknown]
  - Foetal growth restriction [Unknown]
  - Premature baby [Unknown]
  - Low birth weight baby [Unknown]
  - Neonatal respiratory distress syndrome [Unknown]
  - Patent ductus arteriosus [Unknown]
  - Patent ductus arteriosus repair [Unknown]
  - Maternal exposure during pregnancy [Unknown]
